FAERS Safety Report 18710587 (Version 1)
Quarter: 2021Q1

REPORT INFORMATION
  Report Type: Report from Study
  Country: US (occurrence: US)
  Receive Date: 20210107
  Receipt Date: 20210107
  Transmission Date: 20210419
  Serious: Yes (Hospitalization)
  Sender: FDA-Public Use
  Company Number: US-ROCHE-2744321

PATIENT
  Age: 78 Year
  Sex: Male
  Weight: 86.1 kg

DRUGS (2)
  1. ATEZOLIZUMAB. [Suspect]
     Active Substance: ATEZOLIZUMAB
     Indication: BLADDER TRANSITIONAL CELL CARCINOMA
     Dosage: OVER 60 MINUTES ON DAY 1.?LAST ADMINISTERED ON 03/AUG/2020.
     Route: 041
     Dates: start: 20190116
  2. ERIBULIN MESYLATE [Suspect]
     Active Substance: ERIBULIN MESYLATE
     Indication: BLADDER TRANSITIONAL CELL CARCINOMA
     Dosage: OVER 2?3 MINUTES ON DAYS 1 AND 8?LAST ADMINISTERED ON 10/AUG/2020.
     Route: 042
     Dates: start: 20190116

REACTIONS (4)
  - Polymyalgia rheumatica [Recovering/Resolving]
  - Arthralgia [Recovering/Resolving]
  - Hyponatraemia [Recovered/Resolved]
  - Polyneuropathy [Unknown]

NARRATIVE: CASE EVENT DATE: 20200823
